FAERS Safety Report 9705763 (Version 1)
Quarter: 2013Q4

REPORT INFORMATION
  Report Type: Spontaneous
  Country: US (occurrence: US)
  Receive Date: 20131122
  Receipt Date: 20131122
  Transmission Date: 20140711
  Serious: No
  Sender: FDA-Public Use
  Company Number: US-GILEAD-2008-0017988

PATIENT
  Sex: Female
  Weight: 79.38 kg

DRUGS (13)
  1. LETAIRIS [Suspect]
     Indication: PULMONARY ARTERIAL HYPERTENSION
     Route: 048
     Dates: start: 20080802
  2. CYMBALTA [Concomitant]
     Dosage: AS DIRECTED
     Route: 048
  3. PRINIVIL [Concomitant]
     Dosage: AS DIRECTED
     Route: 048
  4. ZOCOR [Concomitant]
     Dosage: AS DIRECTED
     Route: 048
  5. DYAZIDE [Concomitant]
     Dosage: AS DIRECTED
     Route: 048
  6. COREG [Concomitant]
     Dosage: AS DIRECTED
     Route: 048
  7. GLIPIZIDE [Concomitant]
     Dosage: AS DIRECTED
     Route: 048
  8. COLACE [Concomitant]
     Dosage: AS DIRECTED
     Route: 048
  9. ASPIRIN [Concomitant]
     Dosage: AS DIRECTED
     Route: 048
  10. SPIRIVA [Concomitant]
     Dosage: AS DIRECTED
  11. ARICEPT [Concomitant]
     Dosage: AS DIRECTED
     Route: 048
  12. PLAVIX [Concomitant]
     Dosage: AS DIRECTED
     Route: 048
  13. IRON [Concomitant]
     Dosage: AS DIRECTED
     Route: 048

REACTIONS (2)
  - Swelling [None]
  - Fluid retention [None]
